FAERS Safety Report 5288178-1 (Version None)
Quarter: 2007Q2

REPORT INFORMATION
  Report Type: 
  Country: None (occurrence: None)
  Receive Date: 20070402
  Receipt Date: 20070402
  Transmission Date: 20071010
  Serious: No
  Sender: FDA-Public Use
  Company Number: None

PATIENT
  Age: 63 Year
  Sex: Female
  Weight: 78.9259 kg

DRUGS (1)
  1. GENTAMICIN [Suspect]
     Indication: ENTEROCOCCAL INFECTION
     Dosage: EVERY 24 HOURS IV DRIP
     Route: 041
     Dates: start: 20070105, end: 20070214

REACTIONS (3)
  - BALANCE DISORDER [None]
  - DEAFNESS [None]
  - RENAL DISORDER [None]
